FAERS Safety Report 14178352 (Version 1)
Quarter: 2017Q4

REPORT INFORMATION
  Report Type: Spontaneous
  Country: NL (occurrence: NL)
  Receive Date: 20171110
  Receipt Date: 20171110
  Transmission Date: 20180321
  Serious: Yes (Other)
  Sender: FDA-Public Use
  Company Number: NL-AMGEN-NLDSP2017169787

PATIENT
  Age: 58 Year
  Sex: Female

DRUGS (1)
  1. ENBREL [Suspect]
     Active Substance: ETANERCEPT
     Indication: RHEUMATOID ARTHRITIS
     Dosage: 1 DF, UNK
     Route: 058
     Dates: start: 20141201

REACTIONS (7)
  - Pneumonia [Unknown]
  - Enteritis [Unknown]
  - Dry skin [Unknown]
  - Pruritus [Unknown]
  - Stomatitis [Unknown]
  - Erythema [Unknown]
  - Influenza [Unknown]
